FAERS Safety Report 13972817 (Version 5)
Quarter: 2018Q1

REPORT INFORMATION
  Report Type: Report from Study
  Country: DE (occurrence: DE)
  Receive Date: 20170915
  Receipt Date: 20180105
  Transmission Date: 20180508
  Serious: Yes (Hospitalization)
  Sender: FDA-Public Use
  Company Number: DE-CELGENEUS-DEU-20170901075

PATIENT
  Age: 61 Year
  Sex: Female
  Weight: 80 kg

DRUGS (7)
  1. ABRAXANE [Suspect]
     Active Substance: PACLITAXEL
     Indication: BREAST CANCER
     Dosage: 250 MILLIGRAM
     Route: 041
     Dates: start: 20170525, end: 20170830
  2. IBUFLAM [Concomitant]
     Active Substance: IBUPROFEN
     Indication: PRODUCT USED FOR UNKNOWN INDICATION
     Route: 065
     Dates: start: 2015
  3. METOPROLOL. [Concomitant]
     Active Substance: METOPROLOL
     Indication: PRODUCT USED FOR UNKNOWN INDICATION
     Route: 065
     Dates: start: 20170712, end: 20170726
  4. DENOSUMAB [Suspect]
     Active Substance: DENOSUMAB
     Indication: BREAST CANCER
     Dosage: 120 MILLIGRAM
     Route: 058
     Dates: start: 20170524, end: 20170830
  5. MITAB [Concomitant]
     Indication: DEPRESSION
     Route: 065
     Dates: start: 201702
  6. CARBOPLATIN. [Suspect]
     Active Substance: CARBOPLATIN
     Indication: BREAST CANCER
     Dosage: 208 MILLIGRAM
     Route: 041
     Dates: start: 20170525, end: 20170830
  7. NOVAMINSULFON [Concomitant]
     Active Substance: METAMIZOLE
     Indication: PRODUCT USED FOR UNKNOWN INDICATION
     Route: 065
     Dates: start: 2015

REACTIONS (1)
  - Road traffic accident [Recovered/Resolved]

NARRATIVE: CASE EVENT DATE: 20170824
